FAERS Safety Report 9292576 (Version 1)
Quarter: 2013Q2

REPORT INFORMATION
  Report Type: Spontaneous
  Country: US (occurrence: None)
  Receive Date: 20130515
  Receipt Date: 20130515
  Transmission Date: 20140414
  Serious: No
  Sender: FDA-Public Use
  Company Number: None

PATIENT
  Age: 28 Year
  Sex: Male

DRUGS (1)
  1. DIETARY SUPPLEMENT [Suspect]
     Dates: start: 20110701, end: 20110912

REACTIONS (4)
  - Drug-induced liver injury [None]
  - Jaundice [None]
  - Cholelithiasis [None]
  - Cholestasis [None]
